FAERS Safety Report 11086775 (Version 1)
Quarter: 2015Q2

REPORT INFORMATION
  Report Type: Spontaneous
  Country: CN (occurrence: CN)
  Receive Date: 20150504
  Receipt Date: 20150504
  Transmission Date: 20150821
  Serious: No
  Sender: FDA-Public Use
  Company Number: CN-JNJFOC-20150424207

PATIENT
  Age: 43 Year
  Sex: Male

DRUGS (1)
  1. DUROGESIC D-TRANS [Suspect]
     Active Substance: FENTANYL
     Indication: CANCER PAIN
     Dosage: INCREASE BY 4.2UG IN EVERY 12 HOURS
     Route: 062
     Dates: start: 20150405

REACTIONS (5)
  - Wrong technique in drug usage process [Unknown]
  - Cancer pain [Unknown]
  - Chest discomfort [Not Recovered/Not Resolved]
  - Tremor [Not Recovered/Not Resolved]
  - Extra dose administered [Unknown]

NARRATIVE: CASE EVENT DATE: 20150429
